FAERS Safety Report 9639862 (Version 1)
Quarter: 2013Q4

REPORT INFORMATION
  Report Type: Other
  Country: GB (occurrence: GB)
  Receive Date: 20131023
  Receipt Date: 20131023
  Transmission Date: 20140711
  Serious: Yes (Other)
  Sender: FDA-Public Use
  Company Number: GB-PERRIGO-13GB010643

PATIENT
  Age: 61 Year
  Sex: Female
  Weight: 54.88 kg

DRUGS (1)
  1. NAPROXEN 250MG 16028/0144 [Suspect]
     Indication: ARTHRITIS
     Dosage: UNK
     Route: 048
     Dates: start: 20130920, end: 20131002

REACTIONS (4)
  - Eye haemorrhage [Recovering/Resolving]
  - Ocular hyperaemia [Recovering/Resolving]
  - Eye swelling [Recovering/Resolving]
  - Alopecia [None]
